FAERS Safety Report 24136678 (Version 1)
Quarter: 2024Q3

REPORT INFORMATION
  Report Type: Spontaneous
  Country: US (occurrence: US)
  Receive Date: 20240725
  Receipt Date: 20240725
  Transmission Date: 20241017
  Serious: Yes (Death, Other)
  Sender: BAXTER
  Company Number: US-BAXTER-2024BAX021907

PATIENT
  Age: 15 Year
  Sex: Male

DRUGS (1)
  1. LEVOFLOXACIN [Suspect]
     Active Substance: LEVOFLOXACIN
     Dosage: 500 MG DAILY
     Route: 065

REACTIONS (12)
  - Toxic epidermal necrolysis [Fatal]
  - Arthralgia [Fatal]
  - Pyrexia [Fatal]
  - Asthenia [Fatal]
  - Rash pruritic [Fatal]
  - Heart rate increased [Fatal]
  - Exfoliative rash [Fatal]
  - White blood cell count increased [Fatal]
  - Eosinophil count increased [Fatal]
  - Oedema peripheral [Fatal]
  - Blister [Fatal]
  - Skin lesion [Fatal]
